FAERS Safety Report 22951127 (Version 3)
Quarter: 2023Q4

REPORT INFORMATION
  Report Type: Spontaneous
  Country: JP (occurrence: None)
  Receive Date: 20230917
  Receipt Date: 20231211
  Transmission Date: 20240109
  Serious: Yes (Death, Other)
  Sender: FDA-Public Use
  Company Number: 2023A210883

PATIENT
  Age: 68 Year
  Sex: Female

DRUGS (3)
  1. IMFINZI [Suspect]
     Active Substance: DURVALUMAB
     Indication: Bile duct cancer
     Dosage: DOSE UNKNOWN1500.0MG UNKNOWN
     Route: 041
     Dates: start: 20230714, end: 20230714
  2. GEMCITABINE HYDROCHLORIDE [Suspect]
     Active Substance: GEMCITABINE HYDROCHLORIDE
     Indication: Bile duct cancer
     Dosage: DOSE UNKNOWN1500.0MG UNKNOWN
     Dates: start: 20230714
  3. CISPLATIN [Suspect]
     Active Substance: CISPLATIN
     Indication: Bile duct cancer
     Dosage: DOSE UNKNOWN27.0MG UNKNOWN
     Dates: start: 20230714

REACTIONS (3)
  - Lymphangiosis carcinomatosa [Fatal]
  - Deep vein thrombosis [Recovered/Resolved]
  - General physical health deterioration [Unknown]

NARRATIVE: CASE EVENT DATE: 20230101
